FAERS Safety Report 7553565-5 (Version None)
Quarter: 2011Q2

REPORT INFORMATION
  Report Type: 
  Country: None (occurrence: None)
  Receive Date: 20110617
  Receipt Date: 20110325
  Transmission Date: 20111010
  Serious: Yes (Hospitalization)
  Sender: FDA-Public Use
  Company Number: JP-JNJFOC-20101106980

PATIENT
  Age: 73 Year
  Sex: Male
  Weight: 70 kg

DRUGS (16)
  1. REMICADE [Suspect]
     Route: 042
     Dates: start: 20100608
  2. ISOSORBIDE DINITRATE [Concomitant]
     Indication: ANGINA PECTORIS
     Route: 048
  3. ISONIAZID [Concomitant]
     Indication: ANTIBIOTIC PROPHYLAXIS
     Dates: start: 20100622
  4. PANDEL CRESA [Concomitant]
     Indication: PSORIASIS
  5. LIVALO [Concomitant]
     Indication: HYPERURICAEMIA
     Route: 048
  6. REMICADE [Suspect]
     Route: 042
     Dates: start: 20100803
  7. OXAROL [Concomitant]
     Indication: PSORIASIS
  8. REMICADE [Suspect]
     Route: 042
     Dates: start: 20100928
  9. FAMOTIDINE [Concomitant]
     Indication: ANGINA PECTORIS
     Route: 048
  10. TICLOPIDINE HCL [Concomitant]
     Indication: ANGINA PECTORIS
     Route: 048
  11. REMICADE [Suspect]
     Route: 042
     Dates: start: 20100511
  12. ISONIAZID [Concomitant]
     Dates: start: 20100427, end: 20100621
  13. ANTEBATE [Concomitant]
     Indication: PSORIASIS
  14. PURSENNID [Concomitant]
     Indication: CONSTIPATION
     Route: 048
  15. REMICADE [Suspect]
     Indication: PSORIASIS
     Route: 042
     Dates: start: 20100427
  16. ENALAPRIL MALEATE [Concomitant]
     Indication: ANGINA PECTORIS
     Route: 048

REACTIONS (1)
  - ACUTE MYOCARDIAL INFARCTION [None]
